FAERS Safety Report 8214224-9 (Version None)
Quarter: 2012Q1

REPORT INFORMATION
  Report Type: 
  Country: None (occurrence: None)
  Receive Date: 20120316
  Receipt Date: 20120227
  Transmission Date: 20120608
  Serious: No
  Sender: FDA-Public Use
  Company Number: JP-JNJFOC-20120306433

PATIENT
  Age: 65 Year
  Sex: Female

DRUGS (3)
  1. REMICADE [Suspect]
     Route: 042
     Dates: start: 20070608, end: 20070608
  2. REMICADE [Suspect]
     Route: 042
     Dates: start: 20070221
  3. REMICADE [Suspect]
     Indication: RHEUMATOID ARTHRITIS
     Route: 042
     Dates: start: 20070327, end: 20070327

REACTIONS (1)
  - HERPES ZOSTER [None]
